FAERS Safety Report 10237421 (Version 5)
Quarter: 2015Q1

REPORT INFORMATION
  Report Type: Report from Study
  Country: US (occurrence: US)
  Receive Date: 20140614
  Receipt Date: 20140821
  Transmission Date: 20150720
  Serious: Yes (Hospitalization, Other)
  Sender: FDA-Public Use
  Company Number: US-ALEXION PHARMACEUTICALS INC.-A201402284

PATIENT

DRUGS (22)
  1. ACTOS [Concomitant]
     Active Substance: PIOGLITAZONE HYDROCHLORIDE
     Indication: DIABETES MELLITUS
     Dosage: UNK, QD AND PRN
     Route: 048
     Dates: start: 20100101
  2. FOLIC ACID. [Concomitant]
     Active Substance: FOLIC ACID
     Indication: PRODUCT USED FOR UNKNOWN INDICATION
     Dosage: 1 MG, QD
     Route: 048
     Dates: start: 20140428
  3. OXYCODONE [Concomitant]
     Active Substance: OXYCODONE
     Indication: PAIN MANAGEMENT
     Dosage: 30 MG, Q3HR PRN
     Route: 048
     Dates: start: 20140428
  4. OXYCODONE [Concomitant]
     Active Substance: OXYCODONE
     Dosage: 15-30 MG Q 4 HRS PRN
     Route: 048
     Dates: start: 20140428
  5. PREDNISONE. [Concomitant]
     Active Substance: PREDNISONE
     Indication: STEROID THERAPY
     Dosage: 20 MG, QD X 30 DAYS
     Route: 048
     Dates: start: 20140428
  6. MUCINEX [Concomitant]
     Active Substance: GUAIFENESIN
     Indication: MIDDLE EAR EFFUSION
     Dosage: 2 TABS, QD
     Dates: start: 20140604
  7. FOSAMAX [Concomitant]
     Active Substance: ALENDRONATE SODIUM
     Indication: PRODUCT USED FOR UNKNOWN INDICATION
     Dosage: 70 MG, QW
     Route: 048
     Dates: start: 20140428
  8. PROMETHAZINE [Concomitant]
     Active Substance: PROMETHAZINE\PROMETHAZINE HYDROCHLORIDE
     Indication: NAUSEA
     Dosage: 25 MG, Q4-6 HRS PRN
     Route: 048
     Dates: start: 20140428
  9. ATROPINE W/DIPHENOXYLATE           /00034001/ [Concomitant]
     Active Substance: ATROPINE SULFATE\DIPHENOXYLATE
     Indication: PRODUCT USED FOR UNKNOWN INDICATION
     Dosage: 0.25 TO 2.5 MG 2 TABS, QID
     Route: 065
     Dates: start: 20140428
  10. BISOPROLOL W/HYDROCHLOROTHIAZIDE   /06833601/ [Concomitant]
     Indication: DIURETIC THERAPY
     Dosage: 5-6.5 MG 1 TAB, QD
     Route: 048
     Dates: start: 20140428
  11. ERGOCALCIFEROL. [Concomitant]
     Active Substance: ERGOCALCIFEROL
     Indication: VITAMIN D
     Dosage: 1.25 MG, QW X 6 WEEKS
     Route: 065
     Dates: start: 20140428
  12. SOLIRIS [Suspect]
     Active Substance: ECULIZUMAB
     Indication: PAROXYSMAL NOCTURNAL HAEMOGLOBINURIA
     Dosage: 900 MG, Q2W
     Route: 042
     Dates: start: 20140521
  13. NEXIUM [Concomitant]
     Active Substance: ESOMEPRAZOLE MAGNESIUM
     Indication: PRODUCT USED FOR UNKNOWN INDICATION
     Dosage: 40 MG, QD
     Route: 048
     Dates: start: 20140428
  14. OXYCONTIN [Concomitant]
     Active Substance: OXYCODONE HYDROCHLORIDE
     Indication: PAIN MANAGEMENT
     Dosage: 80 MG, 3 Q6H
     Route: 048
     Dates: start: 20140428
  15. PERCOCET                           /00446701/ [Concomitant]
     Active Substance: ACETAMINOPHEN\OXYCODONE HYDROCHLORIDE\OXYCODONE TEREPHTHALATE
     Indication: HEADACHE
     Dosage: 1 TAB AFTER EVERY 4 HOURS, PRN
     Route: 048
  16. ALDARA [Concomitant]
     Active Substance: IMIQUIMOD
     Indication: PRODUCT USED FOR UNKNOWN INDICATION
     Dosage: 1 APP TOPICALLY
     Route: 061
     Dates: start: 20140428
  17. MAG-OX [Concomitant]
     Active Substance: MAGNESIUM OXIDE
     Indication: PRODUCT USED FOR UNKNOWN INDICATION
     Dosage: 400 MG, QD
     Route: 065
     Dates: start: 20140428
  18. POTASSIUM CHLORIDE. [Concomitant]
     Active Substance: POTASSIUM CHLORIDE
     Indication: PRODUCT USED FOR UNKNOWN INDICATION
     Dosage: 20 MEQ TID X 2 DAYS, 20 MEQ BID X 5 DAYS
     Route: 065
     Dates: start: 20140428
  19. PREDNISONE. [Concomitant]
     Active Substance: PREDNISONE
     Dosage: UNK
  20. PROMETHAZINE [Concomitant]
     Active Substance: PROMETHAZINE\PROMETHAZINE HYDROCHLORIDE
     Indication: VOMITING
  21. CIALIS [Concomitant]
     Active Substance: TADALAFIL
     Indication: PRODUCT USED FOR UNKNOWN INDICATION
     Dosage: 05 MG, QD
     Route: 048
     Dates: start: 20140428
  22. PERCOCET                           /00446701/ [Concomitant]
     Active Substance: ACETAMINOPHEN\OXYCODONE HYDROCHLORIDE\OXYCODONE TEREPHTHALATE
     Indication: TOOTHACHE

REACTIONS (7)
  - Fatigue [Recovered/Resolved]
  - Cluster headache [Not Recovered/Not Resolved]
  - Toothache [Unknown]
  - Peripheral swelling [Unknown]
  - Transfusion [Unknown]
  - Cardiac flutter [Not Recovered/Not Resolved]
  - Pyrexia [Not Recovered/Not Resolved]

NARRATIVE: CASE EVENT DATE: 20140602
